FAERS Safety Report 9061422 (Version 1)
Quarter: 2013Q1

REPORT INFORMATION
  Report Type: Spontaneous
  Country: US (occurrence: None)
  Receive Date: 20130118
  Receipt Date: 20130118
  Transmission Date: 20140127
  Serious: Yes (Hospitalization)
  Sender: FDA-Public Use
  Company Number: CIO3001708

PATIENT
  Age: 86 Year
  Sex: Male

DRUGS (1)
  1. MENTHOL [Suspect]
     Indication: BREATH ODOUR
     Dosage: 2 BAGS OF LOZENGES,
     Route: 048

REACTIONS (30)
  - Toxicity to various agents [None]
  - Loss of consciousness [None]
  - Confusional state [None]
  - Asthenia [None]
  - Myalgia [None]
  - Macule [None]
  - Blood pressure increased [None]
  - Disorientation [None]
  - Gait disturbance [None]
  - Blood creatine phosphokinase increased [None]
  - Oliguria [None]
  - Chromaturia [None]
  - Renal tubular necrosis [None]
  - Dyspepsia [None]
  - Ataxia [None]
  - Diarrhoea [None]
  - Dizziness [None]
  - Aphthous stomatitis [None]
  - Coma [None]
  - Postictal state [None]
  - Immobilisation prolonged [None]
  - Rhabdomyolysis [None]
  - White blood cell count increased [None]
  - Blood potassium increased [None]
  - Anion gap increased [None]
  - Aspartate aminotransferase increased [None]
  - Alanine aminotransferase increased [None]
  - Blood bilirubin unconjugated increased [None]
  - Muscular weakness [None]
  - Scab [None]
